FAERS Safety Report 9355028 (Version 1)
Quarter: 2013Q2

REPORT INFORMATION
  Report Type: Spontaneous
  Country: US (occurrence: None)
  Receive Date: 20130618
  Receipt Date: 20130618
  Transmission Date: 20140414
  Serious: Yes (Hospitalization)
  Sender: FDA-Public Use
  Company Number: None

PATIENT
  Age: 50 Year
  Sex: Female
  Weight: 56.7 kg

DRUGS (5)
  1. TRANSDERM SCOP [Suspect]
     Indication: NAUSEA
     Dosage: 1.5MG?1 PATCH?EVERY 3 DAYS?PLACED BEHIND THE EAR
     Dates: start: 20130602, end: 20130602
  2. LAMICTAL XR [Concomitant]
  3. SIMVASTATIN [Concomitant]
  4. ONDANSETRON [Concomitant]
  5. CALTRATE WITH VITAMIN D [Concomitant]

REACTIONS (4)
  - Feeling abnormal [None]
  - Disturbance in attention [None]
  - Extrasystoles [None]
  - Convulsion [None]
